FAERS Safety Report 9905904 (Version 1)
Quarter: 2013Q2

REPORT INFORMATION
  Report Type: Spontaneous
  Country: US (occurrence: None)
  Receive Date: 20130305
  Receipt Date: 20130305
  Transmission Date: 20140414
  Serious: Yes (Disabling, Other)
  Sender: FDA-Public Use
  Company Number: 163-21880-12041761

PATIENT
  Age: 61 Year
  Sex: Female

DRUGS (2)
  1. REVLIMID (LENALIDOMIDE) (25 MILLIGRAM, CAPSULES) [Suspect]
     Indication: PLASMA CELL MYELOMA
     Route: 048
     Dates: start: 20110103
  2. DECADRON (DEXAMETHASONE) (UNKNOWN) [Concomitant]

REACTIONS (1)
  - Pancytopenia [None]
